FAERS Safety Report 5389397-6 (Version None)
Quarter: 2007Q3

REPORT INFORMATION
  Report Type: 
  Country: None (occurrence: None)
  Receive Date: 20070717
  Receipt Date: 20070705
  Transmission Date: 20080115
  Serious: Yes (Hospitalization)
  Sender: FDA-Public Use
  Company Number: US-ROCHE-480781

PATIENT
  Age: 40 Year
  Sex: Male
  Weight: 70 kg

DRUGS (13)
  1. PEG-INTERFERON ALFA 2A (RO 25-8310) [Suspect]
     Dosage: DOSAGE FORM REPORTED AS VIAL.
     Route: 058
     Dates: start: 20070112, end: 20070126
  2. PEG-INTERFERON ALFA 2A (RO 25-8310) [Suspect]
     Route: 058
     Dates: start: 20070216
  3. RIBAVIRIN [Suspect]
     Dosage: DOSE BLINDED.
     Route: 048
     Dates: start: 20070112, end: 20070128
  4. RIBAVIRIN [Suspect]
     Dosage: DOSE BLINDED.
     Route: 048
     Dates: start: 20070209
  5. IBUPROFEN [Concomitant]
     Dosage: DRUG NAME: IBUPROFEN S
     Dates: start: 20070112
  6. PEGFILGRASTIM [Concomitant]
     Dates: start: 20070124, end: 20070124
  7. BUPROPION HCL [Concomitant]
     Dates: start: 20050907
  8. VARDENAFIL HYDROCHLORIDE [Concomitant]
     Dates: start: 20060129
  9. EFAVIRENZ [Concomitant]
     Dates: start: 20061122
  10. EMTRICITABINE [Concomitant]
     Dates: start: 20061122
  11. TENOFOVIR [Concomitant]
     Dates: start: 20061122
  12. KETOCONAZOLE [Concomitant]
     Dates: start: 20061122
  13. DOCUSATE [Concomitant]
     Dates: start: 20070129, end: 20070207

REACTIONS (1)
  - STAPHYLOCOCCAL ABSCESS [None]
